FAERS Safety Report 14938164 (Version 2)
Quarter: 2018Q2

REPORT INFORMATION
  Report Type: Spontaneous
  Country: US (occurrence: US)
  Receive Date: 20180525
  Receipt Date: 20180525
  Transmission Date: 20180711
  Serious: Yes (Death)
  Sender: FDA-Public Use
  Company Number: PHHY2018US006572

PATIENT
  Age: 23 Year
  Sex: Female

DRUGS (2)
  1. CICLOSPORIN [Suspect]
     Active Substance: CYCLOSPORINE
     Indication: APLASIA PURE RED CELL
     Route: 048
  2. METHOTREXATE. [Concomitant]
     Active Substance: METHOTREXATE
     Indication: APLASIA PURE RED CELL
     Route: 065

REACTIONS (5)
  - Therapy non-responder [Unknown]
  - Haemorrhage intracranial [Fatal]
  - Infection [Fatal]
  - Product use in unapproved indication [Unknown]
  - Headache [Fatal]

NARRATIVE: CASE EVENT DATE: 20081103
